FAERS Safety Report 9190268 (Version 1)
Quarter: 2013Q1

REPORT INFORMATION
  Report Type: Report from Study
  Country: US (occurrence: US)
  Receive Date: 20130326
  Receipt Date: 20130326
  Transmission Date: 20140127
  Serious: Yes (Other)
  Sender: FDA-Public Use
  Company Number: US-BAYER-2013-034001

PATIENT
  Sex: Female

DRUGS (1)
  1. STIVARGA [Suspect]
     Indication: RECTAL CANCER
     Dosage: DAILY DOSE 160 MG
     Route: 048
     Dates: start: 201212

REACTIONS (6)
  - Neuropathy peripheral [None]
  - Pain in extremity [None]
  - Skin exfoliation [None]
  - Muscle spasms [None]
  - Alopecia [None]
  - Dysphonia [None]
